FAERS Safety Report 14474447 (Version 2)
Quarter: 2018Q2

REPORT INFORMATION
  Report Type: Report from Study
  Country: US (occurrence: US)
  Receive Date: 20180201
  Receipt Date: 20180402
  Transmission Date: 20180711
  Serious: Yes (Death, Hospitalization)
  Sender: FDA-Public Use
  Company Number: US-PFIZER INC-2017383727

PATIENT
  Age: 75 Year
  Sex: Male

DRUGS (10)
  1. SUTENT [Suspect]
     Active Substance: SUNITINIB MALATE
     Dosage: 50 MG, CYCLIC (DAILY/ 2 WEEKS ON AND 1 WEEK OFF)
     Route: 048
     Dates: start: 20170817, end: 201801
  2. CHLORPROMAZINE. [Concomitant]
     Active Substance: CHLORPROMAZINE
     Indication: HICCUPS
     Dosage: 25 MG, AS NEEDED (25 MG TID PRN )
     Dates: start: 20170913, end: 20170918
  3. SUTENT [Suspect]
     Active Substance: SUNITINIB MALATE
     Dosage: 37.5 MG, CYCLIC, (DAILY14 DAYS, THEN 1 WEEK OFF EVERY 21 DAYS )
     Route: 048
     Dates: start: 20171018
  4. GEMCITABINE [Concomitant]
     Active Substance: GEMCITABINE\GEMCITABINE HYDROCHLORIDE
     Dosage: UNK
  5. SUTENT [Suspect]
     Active Substance: SUNITINIB MALATE
     Indication: METASTATIC RENAL CELL CARCINOMA
     Dosage: 50 MG, CYCLIC (DAILY/ 2 WEEKS ON AND 1 WEEK OFF)
     Route: 048
     Dates: start: 20170821, end: 20171022
  6. REGLAN [Concomitant]
     Active Substance: METOCLOPRAMIDE HYDROCHLORIDE
     Indication: NAUSEA
     Dosage: 10 MG, AS NEEDED (Q 6HRS)
     Dates: start: 20170821
  7. SUTENT [Suspect]
     Active Substance: SUNITINIB MALATE
     Dosage: 37.5 MG, CYCLIC, (DAILY/ 2 WEEKS ON AND 1 WEEK OFF )
     Route: 048
     Dates: start: 20171023, end: 201801
  8. PERCOCET [Concomitant]
     Active Substance: ACETAMINOPHEN\OXYCODONE HYDROCHLORIDE
     Indication: PAIN
     Dosage: UNK, AS NEEDED [OXYCODONE HYDROCHLORIDE 5 MG/PARACETAMOL 325 MG] (Q 6HRS)
     Dates: start: 20170817
  9. REGLAN [Concomitant]
     Active Substance: METOCLOPRAMIDE HYDROCHLORIDE
     Indication: VOMITING
  10. AMLODIPINE [Concomitant]
     Active Substance: AMLODIPINE BESYLATE
     Indication: HYPERTENSION
     Dosage: 5 MG, DAILY

REACTIONS (11)
  - Neoplasm progression [Fatal]
  - Blood pressure increased [Recovering/Resolving]
  - Neck pain [Recovered/Resolved]
  - Erythema [Recovering/Resolving]
  - Hiccups [Recovered/Resolved]
  - Hair colour changes [Not Recovered/Not Resolved]
  - Platelet count decreased [Recovering/Resolving]
  - Constipation [Recovered/Resolved]
  - Fatigue [Not Recovered/Not Resolved]
  - Condition aggravated [Not Recovered/Not Resolved]
  - Dyspnoea [Recovering/Resolving]

NARRATIVE: CASE EVENT DATE: 2017
